FAERS Safety Report 5885492-3 (Version None)
Quarter: 2008Q3

REPORT INFORMATION
  Report Type: 
  Country: None (occurrence: None)
  Receive Date: 20080916
  Receipt Date: 20080910
  Transmission Date: 20090109
  Serious: Yes (Hospitalization)
  Sender: FDA-Public Use
  Company Number: DE-BRISTOL-MYERS SQUIBB COMPANY-14334973

PATIENT

DRUGS (4)
  1. CETUXIMAB [Suspect]
     Indication: COLON CANCER
     Dosage: STRENGTH: 5MG/ML RECENT INFUSION 15 JUL 2008
     Route: 042
     Dates: start: 20080513
  2. OXALIPLATIN [Suspect]
     Indication: COLON CANCER
     Dosage: RECENT INFUSION: 08JUL2008
     Route: 042
     Dates: start: 20080513
  3. FLUOROURACIL [Suspect]
     Indication: COLON CANCER
     Dosage: RECENT INFUSION 09-JUL-2008
     Route: 042
     Dates: start: 20080513
  4. LEUCOVORIN CALCIUM [Suspect]
     Indication: COLON CANCER
     Dosage: RECENT INFUSION 09-JUL-2008
     Route: 042
     Dates: start: 20080513

REACTIONS (1)
  - CIRCULATORY COLLAPSE [None]
